FAERS Safety Report 14318325 (Version 1)
Quarter: 2017Q4

REPORT INFORMATION
  Report Type: Other
  Country: US (occurrence: US)
  Receive Date: 20171222
  Receipt Date: 20171222
  Transmission Date: 20180321
  Serious: Yes (Other)
  Sender: FDA-Public Use
  Company Number: US-SIM_00785_2017

PATIENT
  Age: 51 Year
  Sex: Male
  Weight: 180 kg

DRUGS (1)
  1. EAR RELIEF, 10 ML (HOMEOPATHIC) [Suspect]
     Active Substance: HOMEOPATHICS
     Indication: PRODUCT USED FOR UNKNOWN INDICATION
     Dosage: 3 DROPS IN ONE EAR/Q4H/
     Route: 001
     Dates: start: 2017

REACTIONS (4)
  - Deafness unilateral [Unknown]
  - Therapy non-responder [Unknown]
  - Expired product administered [Unknown]
  - Foreign body in ear [Unknown]

NARRATIVE: CASE EVENT DATE: 2017
